FAERS Safety Report 25193491 (Version 1)
Quarter: 2025Q2

REPORT INFORMATION
  Report Type: Spontaneous
  Country: US (occurrence: US)
  Receive Date: 20250414
  Receipt Date: 20250414
  Transmission Date: 20250716
  Serious: Yes (Other)
  Sender: ALEXION PHARMACEUTICALS
  Company Number: US-AstraZeneca-CH-00843895A

PATIENT

DRUGS (1)
  1. TAGRISSO [Suspect]
     Active Substance: OSIMERTINIB
     Route: 065

REACTIONS (8)
  - Gait inability [Unknown]
  - Motor dysfunction [Unknown]
  - Neoplasm [Unknown]
  - Hypoaesthesia [Unknown]
  - Paraesthesia [Unknown]
  - Burning sensation [Unknown]
  - Grip strength decreased [Unknown]
  - Muscular weakness [Unknown]
